FAERS Safety Report 21252728 (Version 1)
Quarter: 2022Q3

REPORT INFORMATION
  Report Type: Report from Study
  Country: US (occurrence: US)
  Receive Date: 20220825
  Receipt Date: 20220825
  Transmission Date: 20221027
  Serious: Yes (Other)
  Sender: FDA-Public Use
  Company Number: US-BRISTOL-MYERS SQUIBB COMPANY-2022-026139

PATIENT
  Age: 54 Year
  Sex: Female
  Weight: 72.89 kg

DRUGS (3)
  1. REVLIMID [Suspect]
     Active Substance: LENALIDOMIDE
     Indication: Plasma cell myeloma
     Route: 048
     Dates: start: 20220323
  2. REVLIMID [Suspect]
     Active Substance: LENALIDOMIDE
     Dosage: DAILY AT BEDTIME
     Route: 048
     Dates: start: 20220323
  3. REVLIMID [Suspect]
     Active Substance: LENALIDOMIDE
     Dosage: DOSE: BEDTIME FOR 14 DAYS OFF FOR 7 DAYS REPEAT. ?PRESENTATION: 10 MG CAPSULE-28/BTL.
     Route: 048
     Dates: start: 20220323

REACTIONS (4)
  - Illness [Unknown]
  - Back pain [Unknown]
  - Pruritus [Unknown]
  - Off label use [Unknown]
